FAERS Safety Report 6519113 (Version 3)
Quarter: 2014Q3

REPORT INFORMATION
  Report Type: Spontaneous
  Country: JP (occurrence: None)
  Receive Date: 20071221
  Receipt Date: 20140926
  Transmission Date: 20150326
  Serious: Yes (Death, Hospitalization, Other)
  Sender: FDA-Public Use
  Company Number: 2006JP000410

PATIENT
  Age: 9 Month
  Sex: Female
  Weight: 13 kg

DRUGS (4)
  1. TACROLIMUS ( TACROLIMUS) FORMULATION UNKNOWN [Suspect]
     Active Substance: TACROLIMUS
     Indication: LIVER TRANSPLANT
     Dosage: SEE IMAGE
     Route: 045
     Dates: start: 20011225, end: 20011226
  2. METHYLPREDNISOLONE (METHYLPREDNISOLONE) [Concomitant]
     Active Substance: METHYLPREDNISOLONE
  3. TACROLIMUS ( TACROLIMUS) FORMULATION UNKNOWN [Suspect]
     Active Substance: TACROLIMUS
     Indication: IMMUNOSUPPRESSION
     Dosage: SEE IMAGE
     Route: 045
     Dates: start: 20011225, end: 20011226
  4. ORTHOCLONE OKT3 (MUROMONAB-CD3) [Concomitant]

REACTIONS (11)
  - Epstein-Barr virus infection [None]
  - Pancytopenia [None]
  - Lymphadenopathy [None]
  - Transplant failure [None]
  - Hepatic failure [None]
  - Cytomegalovirus infection [None]
  - Hepatic encephalopathy [None]
  - Malignant histiocytosis [None]
  - Drug ineffective [None]
  - Hepatitis fulminant [None]
  - Transplant rejection [None]

NARRATIVE: CASE EVENT DATE: 20020202
